FAERS Safety Report 8173966-4 (Version None)
Quarter: 2012Q1

REPORT INFORMATION
  Report Type: 
  Country: None (occurrence: None)
  Receive Date: 20120229
  Receipt Date: 20120223
  Transmission Date: 20120608
  Serious: Yes (Other)
  Sender: FDA-Public Use
  Company Number: IT-BAYER-2012-018201

PATIENT
  Sex: Female

DRUGS (1)
  1. CIPROFLOXACIN HYDROCHLORIDE [Suspect]
     Dosage: 1 DF, QD
     Route: 048
     Dates: start: 20110727, end: 20110730

REACTIONS (12)
  - HALLUCINATION, VISUAL [None]
  - TINNITUS [None]
  - MOTOR DYSFUNCTION [None]
  - TOOTH DECALCIFICATION [None]
  - INSOMNIA [None]
  - PANIC ATTACK [None]
  - DYSLEXIA [None]
  - INTESTINAL HAEMORRHAGE [None]
  - ANXIETY [None]
  - DYSCALCULIA [None]
  - HYPOTHYROIDISM [None]
  - ARTHRALGIA [None]
